FAERS Safety Report 4672696-0 (Version None)
Quarter: 2005Q2

REPORT INFORMATION
  Report Type: 
  Country: None (occurrence: None)
  Receive Date: 20050524
  Receipt Date: 20041018
  Transmission Date: 20051028
  Serious: Yes (Hospitalization)
  Sender: FDA-Public Use
  Company Number: SE-ROCHE-383534

PATIENT
  Age: 36 Year
  Sex: Male

DRUGS (35)
  1. DACLIZUMAB [Suspect]
     Route: 042
     Dates: start: 20040612, end: 20040612
  2. DACLIZUMAB [Suspect]
     Route: 042
     Dates: start: 20040605, end: 20040605
  3. MYCOPHENOLATE MOFETIL [Suspect]
     Route: 042
     Dates: start: 20040606, end: 20040610
  4. MYCOPHENOLATE MOFETIL [Suspect]
     Route: 042
     Dates: start: 20040605, end: 20040605
  5. MYCOPHENOLATE MOFETIL [Suspect]
     Route: 048
     Dates: start: 20040611
  6. TACROLIMUS [Suspect]
     Dosage: ADJUSTED TO REACH PREDEFINED TARGET LEVELS.
     Route: 048
     Dates: start: 20040610
  7. METHYLPREDNISOLONE [Suspect]
     Route: 065
     Dates: start: 20040605, end: 20040605
  8. METHYLPREDNISOLONE [Suspect]
     Route: 065
     Dates: start: 20041015, end: 20041015
  9. PREDNISOLONE [Suspect]
     Dosage: TAPERED ACCORDING TO LOCAL PROTOCOL.
     Route: 065
     Dates: start: 20040606, end: 20041014
  10. PREDNISOLONE [Suspect]
     Dosage: ALTERED DUE TO SUSPICION OF REJECTION.
     Route: 065
     Dates: start: 20041016, end: 20041016
  11. PREDNISOLONE [Suspect]
     Dosage: ALTERED DUE TO SUSPICION OF REJECTION.
     Route: 065
     Dates: start: 20041017, end: 20041017
  12. PREDNISOLONE [Suspect]
     Dosage: ALTERED DUE TO SUSPICION OF REJECTION.
     Route: 065
     Dates: start: 20041018, end: 20041018
  13. PREDNISOLONE [Suspect]
     Dosage: ALTERED DUE TO SUSPICION OF REJECTION.
     Route: 065
     Dates: start: 20041019, end: 20041019
  14. PREDNISOLONE [Suspect]
     Dosage: ALTERED DUE TO SUSPICION OF REJECTION.
     Route: 065
     Dates: start: 20041020
  15. OMEPRAZOLE [Concomitant]
     Indication: PROPHYLAXIS
     Dates: start: 20040607
  16. URSODEOXYCHOLIC ACID [Concomitant]
     Indication: PROPHYLAXIS
     Dates: start: 20040609
  17. ACETYLSALICYLIC ACID [Concomitant]
     Indication: THROMBOSIS PROPHYLAXIS
     Dates: start: 20040614
  18. CALCIUM CARBONATE [Concomitant]
     Indication: OSTEOPOROSIS PROPHYLAXIS
     Dates: start: 20040619
  19. TRIMETHOPRIM-SULFAMETHOXAZOLE [Concomitant]
     Indication: ANTIBACTERIAL PROPHYLAXIS
     Dates: start: 20040618
  20. PROPOFOL [Concomitant]
     Dates: start: 20040605, end: 20040605
  21. DOPAMIN [Concomitant]
     Dates: start: 20040605, end: 20040605
  22. NORADRENALINE [Concomitant]
     Dates: start: 20040605, end: 20040605
  23. AMPICILLIN [Concomitant]
     Dates: start: 20040605, end: 20040609
  24. CEFOTAXIM [Concomitant]
     Dates: start: 20040605, end: 20040609
  25. KETOBEMIDON [Concomitant]
     Dates: start: 20040605, end: 20040605
  26. MORFIN [Concomitant]
     Dates: start: 20040605, end: 20040613
  27. AMFOTERICIN B [Concomitant]
     Dates: start: 20040607, end: 20040611
  28. DEXTRAN [Concomitant]
     Dates: start: 20040606, end: 20040608
  29. SUCRALFATE [Concomitant]
     Dates: start: 20040606, end: 20040606
  30. DALTEPARIN [Concomitant]
     Dates: start: 20040609, end: 20040613
  31. NYSTATIN [Concomitant]
     Dates: start: 20040606, end: 20040906
  32. GANCICLOVIR [Concomitant]
     Dates: start: 20040612, end: 20040622
  33. DEXTROPROPOXIFEN [Concomitant]
     Dates: start: 20040613, end: 20040617
  34. PARACETAMOL [Concomitant]
     Dates: start: 20040609, end: 20040619
  35. POLYETHYLENE GLYCOL [Concomitant]
     Dates: start: 20040617, end: 20040617

REACTIONS (10)
  - ASTHENIA [None]
  - COMPLICATIONS OF TRANSPLANTED LIVER [None]
  - CONSTIPATION [None]
  - CYTOMEGALOVIRUS HEPATITIS [None]
  - CYTOMEGALOVIRUS INFECTION [None]
  - DIARRHOEA [None]
  - PAIN [None]
  - PARAESTHESIA [None]
  - THERAPY NON-RESPONDER [None]
  - WOUND INFECTION PSEUDOMONAS [None]
